FAERS Safety Report 18459246 (Version 1)
Quarter: 2020Q4

REPORT INFORMATION
  Report Type: Spontaneous
  Country: GB (occurrence: GB)
  Receive Date: 20201103
  Receipt Date: 20201103
  Transmission Date: 20210114
  Serious: Yes (Other)
  Sender: FDA-Public Use
  Company Number: GB-PFIZER INC-2020418740

PATIENT
  Age: 47 Year
  Sex: Male

DRUGS (31)
  1. SULFASALAZINE. [Suspect]
     Active Substance: SULFASALAZINE
     Dosage: UNK
     Route: 065
     Dates: start: 201611, end: 201701
  2. SULFASALAZINE. [Suspect]
     Active Substance: SULFASALAZINE
     Dosage: 2 G, DAILY
     Route: 065
     Dates: start: 201811, end: 201812
  3. SULFASALAZINE. [Suspect]
     Active Substance: SULFASALAZINE
     Dosage: 3 G, DAILY
     Route: 065
     Dates: start: 201901, end: 201902
  4. HUMIRA [Suspect]
     Active Substance: ADALIMUMAB
     Dosage: UNK 1 EVERY 4 WEEKS
     Route: 058
     Dates: start: 201401, end: 201403
  5. PREDNISOLON [PREDNISOLONE] [Concomitant]
     Active Substance: PREDNISOLONE
     Dosage: 10 MG
     Dates: start: 201905, end: 2019
  6. PREDNISOLON [PREDNISOLONE] [Concomitant]
     Active Substance: PREDNISOLONE
     Dosage: 8 MG
     Dates: start: 201907, end: 201908
  7. ABATACEPT [Concomitant]
     Active Substance: ABATACEPT
     Dosage: 125 MG
     Route: 058
     Dates: start: 201807, end: 201901
  8. FUCIDIN [FUSIDATE SODIUM] [Concomitant]
     Active Substance: FUSIDATE SODIUM
     Indication: PSORIASIS
     Dosage: UNK
  9. SULFASALAZINE. [Suspect]
     Active Substance: SULFASALAZINE
     Dosage: 4 G, DAILY
     Route: 065
     Dates: start: 201812, end: 201901
  10. METHOTREXATE SODIUM. [Suspect]
     Active Substance: METHOTREXATE SODIUM
     Dosage: 30 MG
     Route: 058
     Dates: start: 201905, end: 201911
  11. METHOTREXATE SODIUM. [Suspect]
     Active Substance: METHOTREXATE SODIUM
     Dosage: 20 MG
     Route: 048
     Dates: start: 201807, end: 2018
  12. HYDROXYCHLOROQUINE [Suspect]
     Active Substance: HYDROXYCHLOROQUINE
     Dosage: 400 MG
     Route: 065
  13. HUMIRA [Suspect]
     Active Substance: ADALIMUMAB
     Dosage: UNK
     Route: 058
     Dates: start: 200911
  14. METHOTREXATE SODIUM. [Suspect]
     Active Substance: METHOTREXATE SODIUM
     Dosage: 10MG  TO 15 MG
     Route: 048
     Dates: start: 201804, end: 201807
  15. LEFLUNOMIDE. [Suspect]
     Active Substance: LEFLUNOMIDE
     Dosage: 20 MG
     Route: 065
     Dates: start: 2010
  16. HYDROXYCHLOROQUINE [Suspect]
     Active Substance: HYDROXYCHLOROQUINE
     Dosage: 400 MG
     Route: 065
     Dates: start: 201712, end: 201802
  17. PREDNISOLON [PREDNISOLONE] [Concomitant]
     Active Substance: PREDNISOLONE
     Dosage: 5 MG
     Dates: start: 202005
  18. PREDNISOLON [PREDNISOLONE] [Concomitant]
     Active Substance: PREDNISOLONE
     Dosage: 1 MG, MONTHLY
     Dates: start: 201908
  19. HUMIRA [Suspect]
     Active Substance: ADALIMUMAB
     Dosage: UNK, 1 EVERY 3 WEEKS
     Route: 058
     Dates: start: 2013
  20. TOCILIZUMAB. [Concomitant]
     Active Substance: TOCILIZUMAB
     Dosage: 162 MG, WEEKLY
     Route: 058
     Dates: start: 201804, end: 201807
  21. SULFASALAZINE. [Suspect]
     Active Substance: SULFASALAZINE
     Dosage: 2 G, DAILY
     Route: 065
     Dates: end: 201107
  22. PREDNISOLON [PREDNISOLONE] [Concomitant]
     Active Substance: PREDNISOLONE
     Dosage: 5 MG, DAILY
     Dates: start: 201911, end: 2020
  23. METHOTREXATE SODIUM. [Suspect]
     Active Substance: METHOTREXATE SODIUM
     Dosage: 15 MG
     Route: 048
     Dates: start: 201810
  24. COSENTYX [Suspect]
     Active Substance: SECUKINUMAB
     Dosage: 300 MG
     Route: 065
     Dates: start: 201707, end: 2018
  25. LEFLUNOMIDE. [Suspect]
     Active Substance: LEFLUNOMIDE
     Dosage: 10 MG
     Route: 065
     Dates: start: 201403
  26. LEFLUNOMIDE. [Suspect]
     Active Substance: LEFLUNOMIDE
     Dosage: 20 MG
     Route: 065
     Dates: start: 2015, end: 201803
  27. HUMIRA [Suspect]
     Active Substance: ADALIMUMAB
     Dosage: UNK
     Route: 058
     Dates: start: 201702, end: 2017
  28. PREDNISOLON [PREDNISOLONE] [Concomitant]
     Active Substance: PREDNISOLONE
     Dosage: 8 MG, DAILY
     Dates: start: 202003, end: 202005
  29. RITUXIMAB. [Concomitant]
     Active Substance: RITUXIMAB
  30. METHOTREXATE SODIUM. [Suspect]
     Active Substance: METHOTREXATE SODIUM
     Dosage: 25 MG
     Route: 048
     Dates: start: 201901, end: 201905
  31. NAPROXEN. [Concomitant]
     Active Substance: NAPROXEN
     Dosage: 1000 MG, DAILY

REACTIONS (20)
  - Mycobacterium tuberculosis complex test positive [Unknown]
  - Treatment noncompliance [Unknown]
  - Therapeutic product effect delayed [Unknown]
  - Chest pain [Unknown]
  - Myocardial infarction [Unknown]
  - Paraesthesia [Unknown]
  - Condition aggravated [Unknown]
  - Joint injury [Unknown]
  - Hypoaesthesia [Unknown]
  - Rheumatoid nodule [Recovering/Resolving]
  - Cough [Unknown]
  - Rash [Unknown]
  - Dry skin [Unknown]
  - Neuropathy peripheral [Recovering/Resolving]
  - Meniscus injury [Unknown]
  - Nausea [Unknown]
  - Emphysema [Unknown]
  - Nodule [Unknown]
  - Joint swelling [Unknown]
  - Drug ineffective [Unknown]

NARRATIVE: CASE EVENT DATE: 2010
